FAERS Safety Report 8353956 (Version 4)
Quarter: 2013Q3

REPORT INFORMATION
  Report Type: Spontaneous
  Country: US (occurrence: US)
  Receive Date: 20120125
  Receipt Date: 20130715
  Transmission Date: 20140515
  Serious: No
  Sender: FDA-Public Use
  Company Number: US-PFIZER INC-2012016840

PATIENT
  Age: 66 Year
  Sex: Male
  Weight: 61.22 kg

DRUGS (10)
  1. VIAGRA [Suspect]
     Indication: ERECTILE DYSFUNCTION
     Dosage: 100 MG, AS NEEDED
     Route: 048
     Dates: start: 2002
  2. LISINOPRIL W/HYDROCHLOROTHIAZIDE [Concomitant]
     Indication: HYPERTENSION
     Dosage: 20/12.5 MG
  3. LISINOPRIL W/HYDROCHLOROTHIAZIDE [Concomitant]
     Dosage: UNK, 1X/DAY
  4. TAMSULOSIN HYDROCHLORIDE [Concomitant]
     Indication: PROSTATOMEGALY
     Dosage: 0.4 MG, UNK
     Route: 048
  5. CALCIUM [Concomitant]
     Dosage: 600 MG, 1X/DAY (1200 MG 1/2 QD)
  6. MAGNESIUM [Concomitant]
     Dosage: 125 MG, 1X/DAY (250 MG 1/2 QD)
  7. LISINOPRIL [Concomitant]
     Dosage: 20 MG, 1X/DAY
  8. VITAMIN D3 [Concomitant]
     Dosage: 1000 IU, 1X/DAY
  9. TEMAZEPAM [Concomitant]
     Dosage: 15 MG, 1X/DAY (AT NIGHT)
  10. FLOMOX [Concomitant]
     Dosage: 0.4 MG, 1X/DAY

REACTIONS (3)
  - Headache [Not Recovered/Not Resolved]
  - Influenza like illness [Recovered/Resolved]
  - Anxiety [Not Recovered/Not Resolved]
